FAERS Safety Report 14296417 (Version 6)
Quarter: 2018Q1

REPORT INFORMATION
  Report Type: Spontaneous
  Country: US (occurrence: US)
  Receive Date: 20171218
  Receipt Date: 20180312
  Transmission Date: 20180509
  Serious: Yes (Other)
  Sender: FDA-Public Use
  Company Number: US-PFIZER INC-2017536452

PATIENT
  Age: 72 Year
  Sex: Female
  Weight: 74.39 kg

DRUGS (14)
  1. MS CONTIN [Concomitant]
     Active Substance: MORPHINE SULFATE
     Indication: ARTHRALGIA
     Dosage: 15 MG, 3X/DAY
     Route: 048
  2. BABY ASPIRIN [Concomitant]
     Active Substance: ASPIRIN
     Indication: COAGULOPATHY
     Dosage: 81 MG, 1X/DAY
     Route: 048
  3. DULOXETINE. [Concomitant]
     Active Substance: DULOXETINE
     Indication: DEPRESSION
     Dosage: 60 MG, 2X/DAY
     Route: 048
  4. CLONAZEPAM. [Concomitant]
     Active Substance: CLONAZEPAM
     Indication: ANXIETY
     Dosage: 1 MG, AS NEEDED
     Route: 048
  5. BENAZEPRIL AND HYDROCHLOROTHIAZIDE [Concomitant]
     Active Substance: BENAZEPRIL HYDROCHLORIDE\HYDROCHLOROTHIAZIDE
     Indication: BLOOD PRESSURE ABNORMAL
     Dosage: 1 DF, 1X/DAY ([BENAZEPRIL 10MG]/[HYDROCHLOROTHIAZIDE 12.5MG] ONCE A DAY)
     Route: 048
  6. PRAZOSIN HCL [Concomitant]
     Active Substance: PRAZOSIN HYDROCHLORIDE
     Indication: POST-TRAUMATIC STRESS DISORDER
     Dosage: 2 MG, 1X/DAY (2MG CAPSULE BY MOUTH AT NIGHT)
     Route: 048
  7. LYRICA [Suspect]
     Active Substance: PREGABALIN
     Indication: MYALGIA
     Dosage: 75 MG, 2X/DAY (EVERY 12 HOURS)
     Route: 048
     Dates: end: 201712
  8. TRAZODONE [Concomitant]
     Active Substance: TRAZODONE HYDROCHLORIDE
     Indication: SLEEP DISORDER
     Dosage: 100 MG, 1X/DAY (100MG TABLET BY MOUTH AT BEDTIME)
     Route: 048
  9. MS CONTIN [Concomitant]
     Active Substance: MORPHINE SULFATE
     Indication: BACK PAIN
     Dosage: 15 MG, 2X/DAY (EVERY 12 HOURS)
     Route: 048
  10. LYRICA [Suspect]
     Active Substance: PREGABALIN
     Indication: FIBROMYALGIA
     Dosage: 75 MG, 2X/DAY
     Route: 048
  11. LYRICA [Suspect]
     Active Substance: PREGABALIN
     Indication: ARTHRALGIA
     Dosage: 75 MG, 2X/DAY (EVERY 12 HOURS)
     Route: 048
  12. MORPHINE SULFATE. [Concomitant]
     Active Substance: MORPHINE SULFATE
     Indication: BACK PAIN
     Dosage: 0.25 MG, 2X/DAY
     Route: 048
  13. LEVOTHYROXINE. [Concomitant]
     Active Substance: LEVOTHYROXINE
     Indication: THYROID DISORDER
     Dosage: 75 UG, 1X/DAY
     Route: 048
  14. BENAZEPRIL AND HYDROCHLOROTHIAZIDE [Concomitant]
     Active Substance: BENAZEPRIL HYDROCHLORIDE\HYDROCHLOROTHIAZIDE
     Indication: DIURETIC THERAPY

REACTIONS (7)
  - Skin burning sensation [Not Recovered/Not Resolved]
  - Breakthrough pain [Recovered/Resolved]
  - Pain [Unknown]
  - Condition aggravated [Not Recovered/Not Resolved]
  - Withdrawal syndrome [Unknown]
  - Fibromyalgia [Not Recovered/Not Resolved]
  - Sensitivity to weather change [Unknown]

NARRATIVE: CASE EVENT DATE: 2017
